FAERS Safety Report 20645181 (Version 3)
Quarter: 2022Q2

REPORT INFORMATION
  Report Type: Report from Study
  Country: CA (occurrence: CA)
  Receive Date: 20220328
  Receipt Date: 20220420
  Transmission Date: 20220721
  Serious: Yes (Other)
  Sender: FDA-Public Use
  Company Number: CA-BAYER-2022A042296

PATIENT
  Age: 21 Year
  Sex: Female

DRUGS (2)
  1. MIRENA [Suspect]
     Active Substance: LEVONORGESTREL
     Indication: Endometriosis
     Dosage: 20?G/DAY
     Route: 015
     Dates: start: 20150101
  2. MIRENA [Suspect]
     Active Substance: LEVONORGESTREL
     Indication: Contraception

REACTIONS (9)
  - Device breakage [Not Recovered/Not Resolved]
  - Embedded device [Not Recovered/Not Resolved]
  - Procedural haemorrhage [Not Recovered/Not Resolved]
  - Procedural haemorrhage [Not Recovered/Not Resolved]
  - Procedural pain [Not Recovered/Not Resolved]
  - Complication of device removal [Not Recovered/Not Resolved]
  - Device issue [Not Recovered/Not Resolved]
  - Complication of device removal [Not Recovered/Not Resolved]
  - Injury [Not Recovered/Not Resolved]

NARRATIVE: CASE EVENT DATE: 20190101
